FAERS Safety Report 5325838-8 (Version None)
Quarter: 2007Q2

REPORT INFORMATION
  Report Type: 
  Country: None (occurrence: None)
  Receive Date: 20070510
  Receipt Date: 20070503
  Transmission Date: 20071010
  Serious: Yes (Hospitalization)
  Sender: FDA-Public Use
  Company Number: 2007-02217

PATIENT
  Age: 67 Year
  Sex: Female

DRUGS (1)
  1. ACYCLOVIR [Suspect]
     Indication: FACIAL PALSY
     Dosage: 200 MG, 5 TIMES DAILY, ORAL
     Route: 048
     Dates: start: 20051001

REACTIONS (2)
  - NEUROTOXICITY [None]
  - SUBDURAL HAEMATOMA [None]
